FAERS Safety Report 5281171-4 (Version None)
Quarter: 2007Q1

REPORT INFORMATION
  Report Type: 
  Country: None (occurrence: None)
  Receive Date: 20070323
  Receipt Date: 20070319
  Transmission Date: 20070707
  Serious: Yes (Other)
  Sender: FDA-Public Use
  Company Number: L07-ISR-01234-01

PATIENT
  Age: 24 Year
  Sex: Female

DRUGS (2)
  1. ESCITALOPRAM [Suspect]
     Indication: DEPRESSION
     Dates: start: 20050101, end: 20050101
  2. HARMONET [Concomitant]

REACTIONS (2)
  - LICHENIFICATION [None]
  - PIGMENTATION LIP [None]
